FAERS Safety Report 22230480 (Version 1)
Quarter: 2023Q2

REPORT INFORMATION
  Report Type: Spontaneous
  Country: US (occurrence: US)
  Receive Date: 20230420
  Receipt Date: 20230420
  Transmission Date: 20230721
  Serious: Yes (Other)
  Sender: FDA-Public Use
  Company Number: US-JNJFOC-20230423233

PATIENT
  Age: 35 Year
  Sex: Male
  Weight: 88.076 kg

DRUGS (3)
  1. SIMPONI ARIA [Suspect]
     Active Substance: GOLIMUMAB
     Indication: Psoriatic arthropathy
     Dosage: LAST ADMINISTERED ON 10-MAR-2023
     Route: 041
  2. SIMPONI ARIA [Suspect]
     Active Substance: GOLIMUMAB
     Indication: Psoriasis
     Dosage: 3 VIALS
     Route: 041
     Dates: start: 20230111
  3. SIMPONI ARIA [Suspect]
     Active Substance: GOLIMUMAB
     Dosage: 1 VIAL
     Route: 041
     Dates: start: 20230111

REACTIONS (1)
  - Psoriatic arthropathy [Unknown]
